FAERS Safety Report 7928836-0 (Version None)
Quarter: 2011Q4

REPORT INFORMATION
  Report Type: 
  Country: None (occurrence: None)
  Receive Date: 20111118
  Receipt Date: 20111117
  Transmission Date: 20120403
  Serious: Yes (Other)
  Sender: FDA-Public Use
  Company Number: GB-ROCHE-718384

PATIENT
  Sex: Male
  Weight: 86.3 kg

DRUGS (3)
  1. BENDAMUSTINE [Suspect]
     Indication: CHRONIC LYMPHOCYTIC LEUKAEMIA
     Dosage: FREQ: TWICE (D1 AND D2 EVERY 28 DAYS), LAST DOSE PRIOR TO SAE 23 JUN 10;PERMANENTLY DISCONTINUED.
     Route: 042
     Dates: start: 20100622, end: 20100730
  2. MABTHERA [Suspect]
     Indication: CHRONIC LYMPHOCYTIC LEUKAEMIA
     Dosage: LAST DOSE PRIOR SAE: 23 JUN 2010; PERMANENTLY DISCONTINUED
     Route: 042
     Dates: start: 20100622, end: 20100730
  3. WARFARIN SODIUM [Concomitant]
     Dosage: DOSE VARIABLE
     Dates: start: 20091201, end: 20100730

REACTIONS (1)
  - IDIOPATHIC THROMBOCYTOPENIC PURPURA [None]
